FAERS Safety Report 9380227 (Version 1)
Quarter: 2013Q3

REPORT INFORMATION
  Report Type: Spontaneous
  Country: US (occurrence: None)
  Receive Date: 20130701
  Receipt Date: 20130701
  Transmission Date: 20140515
  Serious: Yes (Life-Threatening, Hospitalization, Disabling, Other)
  Sender: FDA-Public Use
  Company Number: None

PATIENT
  Age: 51 Year
  Sex: Female
  Weight: 61.24 kg

DRUGS (4)
  1. LEVAQUIN [Suspect]
     Indication: PNEUMONIA
     Route: 048
     Dates: start: 20100824, end: 20100904
  2. CIPRO [Suspect]
     Route: 048
     Dates: start: 20100113, end: 20110121
  3. CIPRO [Suspect]
     Route: 048
     Dates: start: 20100113, end: 20110121
  4. CIPRO [Suspect]
     Route: 048
     Dates: start: 20100113, end: 20110121

REACTIONS (13)
  - Paraesthesia [None]
  - Rash [None]
  - Visual impairment [None]
  - Tendon disorder [None]
  - Anxiety [None]
  - Toxicity to various agents [None]
  - Liver injury [None]
  - Abasia [None]
  - Impaired self-care [None]
  - Movement disorder [None]
  - Impaired work ability [None]
  - General physical health deterioration [None]
  - Weight decreased [None]
